FAERS Safety Report 6040062-1 (Version None)
Quarter: 2009Q1

REPORT INFORMATION
  Report Type: 
  Country: None (occurrence: None)
  Receive Date: 20090116
  Receipt Date: 20071129
  Transmission Date: 20090719
  Serious: No
  Sender: FDA-Public Use
  Company Number: US-BRISTOL-MYERS SQUIBB COMPANY-14000731

PATIENT

DRUGS (1)
  1. ABILIFY [Suspect]
     Dosage: DOSE INCREASED FROM 5MG TO 10MG.
     Route: 048

REACTIONS (1)
  - DRUG INEFFECTIVE [None]
